FAERS Safety Report 4343125-1 (Version None)
Quarter: 2004Q2

REPORT INFORMATION
  Report Type: 
  Country: None (occurrence: None)
  Receive Date: 20040421
  Receipt Date: 20040408
  Transmission Date: 20050107
  Serious: Yes (Hospitalization)
  Sender: FDA-Public Use
  Company Number: PL-GLAXOSMITHKLINE-B0329504A

PATIENT
  Age: 34 Year
  Sex: Female

DRUGS (2)
  1. LAMOTRIGINE [Suspect]
     Indication: EPILEPSY
     Dosage: 50MG PER DAY
     Dates: start: 20030301
  2. TEGRETOL [Suspect]
     Dosage: 800MG PER DAY
     Dates: start: 19990101

REACTIONS (3)
  - DRUG EXPOSURE DURING PREGNANCY [None]
  - IMMINENT ABORTION [None]
  - NORMAL DELIVERY [None]
